FAERS Safety Report 4410901-6 (Version None)
Quarter: 2004Q2

REPORT INFORMATION
  Report Type: 
  Country: None (occurrence: None)
  Receive Date: 20040630
  Receipt Date: 20040416
  Transmission Date: 20050107
  Serious: No
  Sender: FDA-Public Use
  Company Number: 04P-163-0257768-00

PATIENT
  Age: 47 Year
  Sex: Female
  Weight: 56.6996 kg

DRUGS (4)
  1. HUMIRA [Suspect]
     Indication: RHEUMATOID ARTHRITIS
     Dosage: 40 MG, 1 IN 2 WK, SUBCUTANEOUS
     Route: 058
     Dates: start: 20030415
  2. OXYCODONE HCL [Concomitant]
  3. RISEDRONATE SODIUM [Concomitant]
  4. ARTHROTEC [Concomitant]

REACTIONS (3)
  - DIARRHOEA [None]
  - INFLUENZA [None]
  - VOMITING [None]
